FAERS Safety Report 8666647 (Version 5)
Quarter: 2012Q4

REPORT INFORMATION
  Report Type: 
  Country: US (occurrence: US)
  Receive Date: 20120716
  Receipt Date: 20121002
  Transmission Date: 20130627
  Serious: Yes (Other)
  Sender: FDA-Public Use
  Company Number: US-PFIZER INC-2012165694

PATIENT
  Sex: Male

DRUGS (4)
  1. VIAGRA [Suspect]
     Indication: ERECTILE DYSFUNCTION
     Dosage: 100 mg, as needed
     Route: 048
     Dates: start: 20120708
  2. VIAGRA [Interacting]
     Dosage: 25 mg, UNK
     Dates: start: 2012
  3. VIAGRA [Interacting]
     Dosage: 100 mg, once
     Dates: start: 201207
  4. LORTAB [Interacting]
     Dosage: UNK

REACTIONS (3)
  - Back disorder [Unknown]
  - Drug interaction [Unknown]
  - Drug ineffective [Unknown]
